FAERS Safety Report 13129038 (Version 1)
Quarter: 2017Q1

REPORT INFORMATION
  Report Type: Spontaneous
  Country: US (occurrence: US)
  Receive Date: 20170118
  Receipt Date: 20170118
  Transmission Date: 20170428
  Serious: No
  Sender: FDA-Public Use
  Company Number: None

PATIENT
  Age: 68 Year
  Sex: Male
  Weight: 86.18 kg

DRUGS (9)
  1. AMLODIPINE [Concomitant]
     Active Substance: AMLODIPINE BESYLATE
  2. TUMERIC [Concomitant]
     Active Substance: TURMERIC
  3. ELIQUIS [Concomitant]
     Active Substance: APIXABAN
  4. CITALOPRAM [Concomitant]
     Active Substance: CITALOPRAM HYDROBROMIDE
  5. LIVALO [Suspect]
     Active Substance: PITAVASTATIN CALCIUM
     Indication: BLOOD CHOLESTEROL
     Dosage: ?          QUANTITY:I 4115/?!^;?
     Route: 048
     Dates: start: 20161210, end: 20161210
  6. TYLENOL [Concomitant]
     Active Substance: ACETAMINOPHEN
  7. FISH OIL [Concomitant]
     Active Substance: FISH OIL
  8. RAPAFLO [Concomitant]
     Active Substance: SILODOSIN
  9. MULTIVITAMIN [Concomitant]
     Active Substance: VITAMINS

REACTIONS (5)
  - Headache [None]
  - Flushing [None]
  - Vision blurred [None]
  - Dizziness [None]
  - Blood pressure increased [None]

NARRATIVE: CASE EVENT DATE: 20161210
